FAERS Safety Report 5018113-2 (Version None)
Quarter: 2006Q2

REPORT INFORMATION
  Report Type: 
  Country: None (occurrence: None)
  Receive Date: 20060530
  Receipt Date: 20060518
  Transmission Date: 20061013
  Serious: Yes (Death, Hospitalization)
  Sender: FDA-Public Use
  Company Number: 2006065655

PATIENT
  Age: 80 Year
  Sex: Male
  Weight: 81.1939 kg

DRUGS (11)
  1. LIPITOR [Suspect]
     Indication: CORONARY ARTERY DISEASE
     Dosage: 40 MG (40 MG, 1 IN 1 D)
  2. LIPITOR [Suspect]
     Indication: HYPERLIPIDAEMIA
     Dosage: 40 MG (40 MG, 1 IN 1 D)
  3. WELCHOL [Concomitant]
  4. AVAPRO [Concomitant]
  5. ADVAIR DISKUS 100/50 [Concomitant]
  6. GUAIFENESIN (GUAIFENESIN) [Concomitant]
  7. WARFARIN SODIUM [Concomitant]
  8. FOLIC AICD (FOLIC ACID) [Concomitant]
  9. GARLIC (GARLIC) [Concomitant]
  10. MULTIVITAMIN [Concomitant]
  11. ASPIRIN [Concomitant]

REACTIONS (2)
  - MYOSITIS [None]
  - ORGAN FAILURE [None]
